FAERS Safety Report 10419307 (Version 1)
Quarter: 2014Q2

REPORT INFORMATION
  Report Type: Report from Study
  Country: US (occurrence: None)
  Receive Date: 20140627
  Receipt Date: 20140627
  Transmission Date: 20141212
  Serious: No
  Sender: FDA-Public Use
  Company Number: CABO 14004109

PATIENT
  Age: 58 Year
  Sex: Male

DRUGS (5)
  1. COMETRIQ (CABOZANTINIB) CAPSULE [Suspect]
     Indication: PROSTATE CANCER
     Route: 048
     Dates: start: 20140223
  2. XTANDI (ENZALUTAMIDE) [Concomitant]
  3. FLOMAX (MORNIFLUMATE) [Concomitant]
  4. AVODART (DUTASTERIDE) [Concomitant]
  5. PROSCAR (FINASTERIDE) [Concomitant]

REACTIONS (5)
  - Somnolence [None]
  - Diarrhoea [None]
  - Constipation [None]
  - Fatigue [None]
  - Off label use [None]
